FAERS Safety Report 18099382 (Version 2)
Quarter: 2020Q3

REPORT INFORMATION
  Report Type: Spontaneous
  Country: SK (occurrence: SK)
  Receive Date: 20200731
  Receipt Date: 20200904
  Transmission Date: 20201103
  Serious: Yes (Life-Threatening, Hospitalization)
  Sender: FDA-Public Use
  Company Number: SK-MACLEODS PHARMACEUTICALS US LTD-MAC2020027514

PATIENT

DRUGS (2)
  1. VENLAFAXINE [Suspect]
     Active Substance: VENLAFAXINE HYDROCHLORIDE
     Indication: DEPRESSION
     Dosage: 150 MILLIGRAM, QD, 2X75MG
     Route: 048
  2. VENLAFAXINE [Suspect]
     Active Substance: VENLAFAXINE HYDROCHLORIDE
     Indication: POST-TRAUMATIC STRESS DISORDER
     Dosage: UNK, SINGLE, UNKNOWN LARGE AMT OF VENLAFAXINE COMBINED WITH 1 DCL OF 40% ALCOHOL
     Route: 048

REACTIONS (10)
  - Intentional overdose [Recovered/Resolved]
  - Generalised tonic-clonic seizure [Recovered/Resolved]
  - Hyperreflexia [Recovered/Resolved]
  - Toxicity to various agents [Recovered/Resolved]
  - Hypotension [Recovered/Resolved]
  - Hyperthermia [Recovered/Resolved]
  - Opsoclonus myoclonus [Recovered/Resolved]
  - Sinus tachycardia [Recovered/Resolved]
  - Serotonin syndrome [Recovered/Resolved]
  - Ventricular tachycardia [Recovered/Resolved]
